FAERS Safety Report 9282595 (Version 1)
Quarter: 2013Q2

REPORT INFORMATION
  Report Type: Spontaneous
  Country: US (occurrence: US)
  Receive Date: 20130510
  Receipt Date: 20130510
  Transmission Date: 20140414
  Serious: Yes (Hospitalization)
  Sender: FDA-Public Use
  Company Number: CHPA2013US007954

PATIENT
  Age: 66 Year
  Sex: Female

DRUGS (1)
  1. VOLTAREN GEL [Suspect]
     Indication: PAIN
     Dosage: 2 G, BID-TID
     Route: 061
     Dates: start: 2010, end: 201211

REACTIONS (8)
  - Systemic lupus erythematosus [Recovering/Resolving]
  - Condition aggravated [Recovering/Resolving]
  - Arthralgia [Recovering/Resolving]
  - Cardiac disorder [Recovering/Resolving]
  - Lung infection [Recovering/Resolving]
  - Renal disorder [Recovering/Resolving]
  - Off label use [Unknown]
  - Drug administered at inappropriate site [Unknown]
